FAERS Safety Report 18476446 (Version 2)
Quarter: 2020Q4

REPORT INFORMATION
  Report Type: Spontaneous
  Country: MY (occurrence: MY)
  Receive Date: 20201106
  Receipt Date: 20201201
  Transmission Date: 20210114
  Serious: Yes (Other)
  Sender: FDA-Public Use
  Company Number: MY-AUROBINDO-AUR-APL-2020-055806

PATIENT
  Age: 67 Year
  Sex: Male
  Weight: 41.5 kg

DRUGS (10)
  1. ENALAPRIL [Interacting]
     Active Substance: ENALAPRIL
     Indication: ESSENTIAL HYPERTENSION
     Dosage: 20 MILLIGRAM, TWO TIMES A DAY
     Route: 065
     Dates: start: 2019
  2. PERINDOPRIL [Suspect]
     Active Substance: PERINDOPRIL
     Indication: ESSENTIAL HYPERTENSION
     Dosage: 4 MILLIGRAM, ONCE A DAY
     Route: 065
     Dates: start: 20190416
  3. METHYLDOPA. [Interacting]
     Active Substance: METHYLDOPA
     Indication: ESSENTIAL HYPERTENSION
     Dosage: 1 GRAM, 3 TIMES A DAY
     Route: 065
     Dates: start: 2019
  4. PRAZOSIN. [Interacting]
     Active Substance: PRAZOSIN
     Indication: ESSENTIAL HYPERTENSION
     Dosage: 5 MILLIGRAM, FOUR TIMES/DAY
     Route: 065
     Dates: start: 2019
  5. METOPROLOL. [Interacting]
     Active Substance: METOPROLOL
     Indication: ESSENTIAL HYPERTENSION
     Dosage: 100 MILLIGRAM, TWO TIMES A DAY
     Route: 065
     Dates: start: 20190507, end: 20190909
  6. PYRIDOXINE [Concomitant]
     Active Substance: PYRIDOXINE
     Indication: PULMONARY TUBERCULOSIS
     Dosage: 10 MILLIGRAM, ONCE A DAY
     Route: 065
     Dates: start: 201904
  7. AKURIT-4 [Interacting]
     Active Substance: ETHAMBUTOL HYDROCHLORIDE\ISONIAZID\PYRAZINAMIDE\RIFAMYCIN
     Indication: PULMONARY TUBERCULOSIS
     Dosage: 3 DOSAGE FORM, ONCE A DAY
     Route: 065
     Dates: start: 20190408
  8. SPIRONOLACTONE. [Interacting]
     Active Substance: SPIRONOLACTONE
     Indication: DIURETIC THERAPY
     Dosage: 50 MILLIGRAM, TWO TIMES A DAY
     Route: 065
     Dates: start: 2019
  9. FELODIPINE. [Interacting]
     Active Substance: FELODIPINE
     Indication: ESSENTIAL HYPERTENSION
     Dosage: 10 MILLIGRAM, TWO TIMES A DAY
     Route: 065
     Dates: start: 20190507, end: 201911
  10. AMLODIPINE [Suspect]
     Active Substance: AMLODIPINE BESYLATE
     Indication: ESSENTIAL HYPERTENSION
     Dosage: 10 MILLIGRAM, ONCE A DAY
     Route: 065
     Dates: start: 2019

REACTIONS (2)
  - Drug interaction [Recovered/Resolved]
  - Hypertension [Recovered/Resolved]

NARRATIVE: CASE EVENT DATE: 201904
